FAERS Safety Report 5072046-4 (Version None)
Quarter: 2006Q3

REPORT INFORMATION
  Report Type: 
  Country: None (occurrence: None)
  Receive Date: 20060807
  Receipt Date: 20050415
  Transmission Date: 20061208
  Serious: Yes (Hospitalization, Other)
  Sender: FDA-Public Use
  Company Number: US-AVENTIS-200513250US

PATIENT
  Age: 51 Year
  Sex: Female
  Weight: 64.09 kg

DRUGS (10)
  1. KETEK [Suspect]
     Indication: UPPER RESPIRATORY TRACT INFECTION
     Route: 048
     Dates: start: 20050329, end: 20050403
  2. CALCINEURIN INHIBITOR [Suspect]
  3. MULTIVITAMINS, PLAIN [Concomitant]
     Dosage: DOSE: UNKNOWN
  4. ASPIRIN [Concomitant]
     Dosage: DOSE: UNKNOWN
  5. DIABETIC TUSSIN [Concomitant]
     Dosage: DOSE: UNKNOWN
  6. ORTHO-NOVUM 7/7/7-28 [Concomitant]
     Dosage: DOSE: 1 TABLET
  7. VIACTIV [Concomitant]
     Dosage: DOSE: UNKNOWN
  8. CALCIUM GLUCONATE [Concomitant]
     Dosage: DOSE: UNKNOWN
  9. VITAMIN D [Concomitant]
     Dosage: DOSE: UNKNOWN
  10. IMODIUM [Concomitant]
     Dosage: DOSE: UNKNOWN

REACTIONS (26)
  - BLOOD CHOLESTEROL INCREASED [None]
  - BLOOD TRIGLYCERIDES INCREASED [None]
  - BLOOD URINE [None]
  - BREATH SOUNDS ABNORMAL [None]
  - DIABETES MELLITUS [None]
  - DYSURIA [None]
  - HAEMATOCHEZIA [None]
  - HYPERTENSION [None]
  - HYPERVOLAEMIA [None]
  - HYPOALBUMINAEMIA [None]
  - HYPONATRAEMIA [None]
  - INSOMNIA [None]
  - JAUNDICE [None]
  - LIVER TRANSPLANT REJECTION [None]
  - LOW DENSITY LIPOPROTEIN INCREASED [None]
  - MALNUTRITION [None]
  - NEPHROPATHY TOXIC [None]
  - NOCTURIA [None]
  - OEDEMA PERIPHERAL [None]
  - POLLAKIURIA [None]
  - POST PROCEDURAL COMPLICATION [None]
  - PROTHROMBIN TIME PROLONGED [None]
  - PRURITUS [None]
  - RENAL FAILURE CHRONIC [None]
  - RENAL IMPAIRMENT [None]
  - VOMITING [None]
